FAERS Safety Report 8586253-7 (Version None)
Quarter: 2012Q3

REPORT INFORMATION
  Report Type: 
  Country: None (occurrence: None)
  Receive Date: 20120810
  Receipt Date: 20120802
  Transmission Date: 20120928
  Serious: Yes (Other)
  Sender: FDA-Public Use
  Company Number: CA-ROCHE-1097287

PATIENT
  Sex: Male
  Weight: 90.8 kg

DRUGS (16)
  1. ZOPICLONE [Concomitant]
  2. COLACE [Concomitant]
  3. LEUCOVORIN CALCIUM [Concomitant]
  4. CRESTOR [Concomitant]
  5. CARVEDILOL [Concomitant]
  6. METHOTREXATE [Concomitant]
  7. FUROSEMIDE [Concomitant]
  8. ASPIRIN [Concomitant]
  9. CYMBALTA [Concomitant]
  10. EZETIMIBE [Concomitant]
  11. LORAZEPAM [Concomitant]
  12. OXYCODONE HCL [Concomitant]
  13. ANDRIOL [Concomitant]
  14. ACTEMRA [Suspect]
     Indication: RHEUMATOID ARTHRITIS
     Route: 042
     Dates: start: 20120502
  15. NEXIUM [Concomitant]
  16. SENOKOT [Concomitant]

REACTIONS (1)
  - ARTHRALGIA [None]
